FAERS Safety Report 21793192 (Version 1)
Quarter: 2022Q4

REPORT INFORMATION
  Report Type: Spontaneous
  Country: US (occurrence: US)
  Receive Date: 20221229
  Receipt Date: 20221229
  Transmission Date: 20230113
  Serious: No
  Sender: FDA-Public Use
  Company Number: US-PFIZER INC-202201398452

PATIENT
  Age: 57 Year
  Sex: Female
  Weight: 73.94 kg

DRUGS (1)
  1. ESTRING [Suspect]
     Active Substance: ESTRADIOL
     Indication: Vulvovaginal dryness
     Dosage: 2 MG
     Route: 067
     Dates: start: 20221215, end: 202212

REACTIONS (3)
  - Nausea [Not Recovered/Not Resolved]
  - Dysmenorrhoea [Recovering/Resolving]
  - Abdominal distension [Not Recovered/Not Resolved]

NARRATIVE: CASE EVENT DATE: 20221216
